FAERS Safety Report 7042338-8 (Version None)
Quarter: 2010Q4

REPORT INFORMATION
  Report Type: 
  Country: None (occurrence: None)
  Receive Date: 20101013
  Receipt Date: 20100125
  Transmission Date: 20110411
  Serious: No
  Sender: FDA-Public Use
  Company Number: US-ASTRAZENECA-2010SE03314

PATIENT

DRUGS (1)
  1. SYMBICORT [Suspect]
     Dosage: 160/4.5 UG TWO PUFFS TWICE A DAY
     Route: 055
     Dates: start: 20100119

REACTIONS (4)
  - ACNE [None]
  - BRONCHITIS [None]
  - HYPERSENSITIVITY [None]
  - RASH PAPULAR [None]
